FAERS Safety Report 7249549-7 (Version None)
Quarter: 2011Q1

REPORT INFORMATION
  Report Type: 
  Country: None (occurrence: None)
  Receive Date: 20110119
  Receipt Date: 20110111
  Transmission Date: 20110831
  Serious: Yes (Death, Hospitalization)
  Sender: FDA-Public Use
  Company Number: 111418

PATIENT
  Age: 50 Year
  Sex: Male

DRUGS (1)
  1. CISPLATIN [Suspect]
     Indication: TRANSITIONAL CELL CARCINOMA
     Dosage: 56MG/M2/IV
     Route: 042

REACTIONS (5)
  - PULMONARY EMBOLISM [None]
  - RESPIRATORY FAILURE [None]
  - POSTERIOR REVERSIBLE ENCEPHALOPATHY SYNDROME [None]
  - HYPERCALCAEMIA [None]
  - DECREASED APPETITE [None]
